FAERS Safety Report 5537012-0 (Version None)
Quarter: 2007Q4

REPORT INFORMATION
  Report Type: 
  Country: None (occurrence: None)
  Receive Date: 20071207
  Receipt Date: 20071128
  Transmission Date: 20080405
  Serious: Yes (Hospitalization, Other)
  Sender: FDA-Public Use
  Company Number: JP-JNJFOC-20071002962

PATIENT
  Sex: Female

DRUGS (7)
  1. CRAVIT [Suspect]
     Indication: ENTERITIS INFECTIOUS
     Route: 048
  2. SIGMART [Concomitant]
     Route: 048
  3. PLETAL [Concomitant]
     Route: 048
  4. ASPIRIN [Concomitant]
     Route: 048
  5. MUCOSTA [Concomitant]
     Route: 048
  6. DOGMATYL [Concomitant]
     Route: 048
  7. OMEPRAZOLE [Concomitant]
     Route: 048

REACTIONS (2)
  - ANOREXIA [None]
  - DEMENTIA [None]
